FAERS Safety Report 23066239 (Version 2)
Quarter: 2023Q4

REPORT INFORMATION
  Report Type: Spontaneous
  Country: ES (occurrence: ES)
  Receive Date: 20231015
  Receipt Date: 20231020
  Transmission Date: 20240110
  Serious: Yes (Other)
  Sender: FDA-Public Use
  Company Number: ES-PHARMAMAR-2023PM000667

PATIENT
  Age: 50 Year
  Sex: Female

DRUGS (20)
  1. DOXORUBICIN [Suspect]
     Active Substance: DOXORUBICIN
     Indication: Ovarian epithelial cancer
     Dosage: 30 MILLIGRAM/SQ. METER, Q3W
     Route: 042
     Dates: start: 201704
  2. DOXORUBICIN [Suspect]
     Active Substance: DOXORUBICIN
     Indication: Metastases to peritoneum
     Dosage: 25 MILLIGRAM/SQ. METER, Q3W
     Route: 042
     Dates: end: 201710
  3. DOXORUBICIN [Suspect]
     Active Substance: DOXORUBICIN
     Indication: Ovarian epithelial cancer
  4. DOXORUBICIN [Suspect]
     Active Substance: DOXORUBICIN
     Indication: Ovarian cancer stage III
  5. GEMCITABINE [Suspect]
     Active Substance: GEMCITABINE
     Indication: Ovarian epithelial cancer
     Dosage: 1000 MG/M2 (DAYS 1 AND 8)
     Route: 065
     Dates: start: 201805, end: 201912
  6. PACLITAXEL [Suspect]
     Active Substance: PACLITAXEL
     Indication: Ovarian epithelial cancer
     Dosage: 175 MG/M2
     Route: 065
     Dates: start: 201410, end: 201501
  7. PACLITAXEL [Suspect]
     Active Substance: PACLITAXEL
     Dosage: UNK
     Route: 065
     Dates: start: 201801, end: 201804
  8. CARBOPLATIN [Suspect]
     Active Substance: CARBOPLATIN
     Indication: Ovarian epithelial cancer
     Dosage: UNK
     Route: 065
     Dates: start: 201410, end: 201501
  9. CARBOPLATIN [Suspect]
     Active Substance: CARBOPLATIN
     Dosage: UNK
     Route: 065
     Dates: start: 201801, end: 201804
  10. YONDELIS [Suspect]
     Active Substance: TRABECTEDIN
     Indication: Ovarian epithelial cancer
     Dosage: 1.1 MILLIGRAM/SQ. METER, Q3W
     Route: 042
     Dates: start: 201704
  11. YONDELIS [Suspect]
     Active Substance: TRABECTEDIN
     Indication: Ovarian epithelial cancer
     Dosage: 0.9 MILLIGRAM/SQ. METER, Q3W
     Route: 042
  12. YONDELIS [Suspect]
     Active Substance: TRABECTEDIN
     Indication: Ovarian cancer stage III
  13. YONDELIS [Suspect]
     Active Substance: TRABECTEDIN
     Indication: Metastases to peritoneum
  14. BEVACIZUMAB [Suspect]
     Active Substance: BEVACIZUMAB
     Indication: Ovarian epithelial cancer
     Dosage: 7.5 MG/M2
     Route: 065
     Dates: start: 201410, end: 201501
  15. BEVACIZUMAB [Suspect]
     Active Substance: BEVACIZUMAB
     Dosage: 7.5 MG/M2
     Route: 065
     Dates: start: 201502, end: 201602
  16. BEVACIZUMAB [Suspect]
     Active Substance: BEVACIZUMAB
     Dosage: 15 MG/M2
     Route: 065
     Dates: start: 201805, end: 201912
  17. DOXORUBICIN HYDROCHLORIDE [Concomitant]
     Active Substance: DOXORUBICIN HYDROCHLORIDE
     Indication: Product used for unknown indication
     Dosage: 30 MG/M2
     Route: 065
     Dates: start: 201704, end: 201707
  18. DOXORUBICIN HYDROCHLORIDE [Concomitant]
     Active Substance: DOXORUBICIN HYDROCHLORIDE
     Dosage: 25 MG/M2
     Route: 065
     Dates: start: 201710
  19. DOXORUBICIN HYDROCHLORIDE [Concomitant]
     Active Substance: DOXORUBICIN HYDROCHLORIDE
     Dosage: 40 MG/M2
     Route: 065
     Dates: start: 202001, end: 202003
  20. OLAPARIB [Concomitant]
     Active Substance: OLAPARIB
     Indication: Product used for unknown indication
     Dosage: 400 MILLIGRAM, TWO TIMES A DAY
     Route: 065
     Dates: start: 20161226

REACTIONS (6)
  - Disease progression [Unknown]
  - Pericardial effusion [Not Recovered/Not Resolved]
  - Thrombocytopenia [Recovered/Resolved]
  - Anaemia [Recovered/Resolved]
  - Asthenia [Unknown]
  - Ascites [Unknown]

NARRATIVE: CASE EVENT DATE: 20170101
